FAERS Safety Report 10242018 (Version 1)
Quarter: 2014Q2

REPORT INFORMATION
  Report Type: Spontaneous
  Country: US (occurrence: US)
  Receive Date: 20140617
  Receipt Date: 20140617
  Transmission Date: 20141212
  Serious: No
  Sender: FDA-Public Use
  Company Number: US-PFIZER INC-2014165785

PATIENT
  Age: 54 Year
  Sex: Female

DRUGS (10)
  1. SKELAXIN [Suspect]
     Dosage: UNK
  2. MORPHINE SULFATE [Suspect]
     Dosage: UNK
  3. HYDROCORTISONE [Suspect]
     Dosage: UNK
  4. ERYTHROMYCIN [Suspect]
     Dosage: UNK
  5. ASPIRIN [Suspect]
     Dosage: UNK
  6. DEMEROL [Suspect]
     Dosage: UNK
  7. GLUCOPHAGE [Suspect]
     Dosage: UNK
  8. GLYBURIDE [Suspect]
     Dosage: UNK
  9. CODEINE [Suspect]
     Dosage: UNK
  10. LEVAQUIN [Suspect]
     Dosage: UNK

REACTIONS (1)
  - Drug hypersensitivity [Unknown]
